FAERS Safety Report 16224939 (Version 3)
Quarter: 2025Q3

REPORT INFORMATION
  Report Type: Spontaneous
  Country: EU (occurrence: EU)
  Receive Date: 20190422
  Receipt Date: 20250708
  Transmission Date: 20251021
  Serious: Yes (Other)
  Sender: MYLAN
  Company Number: None

PATIENT
  Age: 5 Month
  Sex: Male
  Weight: 6.3 kg

DRUGS (27)
  1. VORICONAZOLE [Suspect]
     Active Substance: VORICONAZOLE
     Indication: Product used for unknown indication
  2. FOSAPREPITANT DIMEGLUMINE [Suspect]
     Active Substance: FOSAPREPITANT DIMEGLUMINE
     Indication: Prophylaxis of nausea and vomiting
     Dates: start: 20170228, end: 20170301
  3. FOSAPREPITANT DIMEGLUMINE [Suspect]
     Active Substance: FOSAPREPITANT DIMEGLUMINE
     Dosage: 2 MILLIGRAM/KILOGRAM, QD
     Dates: start: 20170301, end: 20170314
  4. EMEND [Suspect]
     Active Substance: APREPITANT
     Indication: Prophylaxis of nausea and vomiting
     Dosage: 2 MG/KG, ONCE DAILY
  5. GRANISETRON [Suspect]
     Active Substance: GRANISETRON
     Indication: Prophylaxis of nausea and vomiting
     Dosage: 2 X PER DAY; 200 MICROGRAM
     Dates: start: 20170216, end: 20170519
  6. LORAZEPAM [Suspect]
     Active Substance: LORAZEPAM
     Indication: Prophylaxis of nausea and vomiting
     Dosage: 4 MILLIGRAM PER MILLILITRE; AMPULE 1 ML; AS NECESSARY 4 X PER DAY 0.5 MG
     Dates: start: 20170311, end: 20170311
  7. HYDROCORTISONE ACETATE [Concomitant]
     Active Substance: HYDROCORTISONE ACETATE
  8. AMLODIPINE [Concomitant]
     Active Substance: AMLODIPINE BESYLATE
     Dosage: 2 X PER DAY 1.5 MG; STRENGTH: 50 MG/ML
     Dates: start: 20170301, end: 20170406
  9. FLUDARABINE PHOSPHATE [Concomitant]
     Active Substance: FLUDARABINE PHOSPHATE
     Indication: Bone marrow conditioning regimen
  10. MICAFUNGIN [Concomitant]
     Active Substance: MICAFUNGIN SODIUM
     Dosage: 1 X PER DAY 12 MG
     Dates: start: 20170310, end: 20170403
  11. PANTOPRAZOLE [Concomitant]
     Active Substance: PANTOPRAZOLE
     Dosage: 1 X PER DAY 10 MG
     Dates: start: 20170226, end: 20170522
  12. FUROSEMIDE [Concomitant]
     Active Substance: FUROSEMIDE
     Dosage: 2 X PER DAY 3 MG
     Dates: start: 20170307, end: 20170419
  13. KETANEST-S [Concomitant]
     Dates: start: 20170310, end: 20170314
  14. KETANEST-S [Concomitant]
     Dates: start: 20170314, end: 20170321
  15. TREOSULFAN [Concomitant]
     Active Substance: TREOSULFAN
     Indication: Bone marrow conditioning regimen
  16. THYMOCYTE IMMUNE GLOBULIN NOS [Concomitant]
     Active Substance: THYMOCYTE IMMUNE GLOBULIN NOS
     Indication: Bone marrow conditioning regimen
  17. CYCLOSPORINE [Concomitant]
     Active Substance: CYCLOSPORINE
     Indication: Prophylaxis against graft versus host disease
     Dosage: 2 X  PER DAY 18 MG
     Dates: start: 20170310, end: 20170328
  18. DAVITAMON VITAMINE D OLIE [Concomitant]
  19. PREDNISOLONE SODIUM SUCCINATE [Concomitant]
     Active Substance: PREDNISOLONE SODIUM SUCCINATE
     Indication: Prophylaxis against graft versus host disease
     Dosage: 3 MILLIGRAM, BID
     Dates: start: 20170307, end: 20170405
  20. PIPERACILLIN AND TAZOBACTAM [Concomitant]
     Active Substance: PIPERACILLIN SODIUM\TAZOBACTAM SODIUM
  21. LEVETIRACETAM [Concomitant]
     Active Substance: LEVETIRACETAM
     Dosage: 2 X PER DAY 60 MG
     Dates: start: 20170222, end: 20170410
  22. SODIUM CHLORIDE [Concomitant]
     Active Substance: SODIUM CHLORIDE
  23. TARGOCID [Concomitant]
     Active Substance: TEICOPLANIN
     Dosage: 1 X PER DAY 60 MG
     Dates: start: 20170228, end: 20170324
  24. ACETAMINOPHEN [Concomitant]
     Active Substance: ACETAMINOPHEN
     Dosage: 6 X PER DAY 50 MG
     Dates: start: 20170216, end: 20170404
  25. CATAPRESAN                         /00171102/ [Concomitant]
     Dosage: STRENGTH: 0.15 MG/ML AMPOULE 1ML; 0.2 MICROGRAM/KG/HOUR
     Dates: start: 20170216, end: 20170413
  26. PIRITRAMIDE [Concomitant]
     Active Substance: PIRITRAMIDE
     Dates: start: 20170216, end: 20170319
  27. THIOTEPA [Concomitant]
     Active Substance: THIOTEPA
     Indication: Bone marrow conditioning regimen

REACTIONS (3)
  - Hepatic failure [Recovered/Resolved]
  - Off label use [Recovered/Resolved]
  - Intentional product use issue [Unknown]

NARRATIVE: CASE EVENT DATE: 20170309
